FAERS Safety Report 5410777-4 (Version None)
Quarter: 2007Q3

REPORT INFORMATION
  Report Type: 
  Country: None (occurrence: None)
  Receive Date: 20070810
  Receipt Date: 20070413
  Transmission Date: 20080115
  Serious: No
  Sender: FDA-Public Use
  Company Number: A0647197A

PATIENT
  Age: 63 Year
  Sex: Female

DRUGS (7)
  1. PAXIL CR [Suspect]
     Indication: DEPRESSION
     Dosage: 37.5MG PER DAY
     Route: 048
     Dates: start: 20050101
  2. NORVASC [Concomitant]
  3. LORATADINE [Concomitant]
  4. ASPIRIN [Concomitant]
  5. NAPROSYN [Concomitant]
  6. MELOXICAM [Concomitant]
  7. NASACORT [Concomitant]

REACTIONS (5)
  - ABNORMAL DREAMS [None]
  - HEADACHE [None]
  - NIGHTMARE [None]
  - PHARMACEUTICAL PRODUCT COMPLAINT [None]
  - TEARFULNESS [None]
